FAERS Safety Report 5857383-5 (Version None)
Quarter: 2008Q3

REPORT INFORMATION
  Report Type: 
  Country: None (occurrence: None)
  Receive Date: 20080825
  Receipt Date: 20080825
  Transmission Date: 20090109
  Serious: Yes (Disabling)
  Sender: FDA-Public Use
  Company Number: None

PATIENT
  Sex: Female

DRUGS (1)
  1. PREDNISONE TAB [Suspect]
     Indication: GASTROOESOPHAGEAL REFLUX DISEASE
     Dosage: 20 MG DAILY MOUTH
     Route: 048
     Dates: start: 20070912, end: 20071127

REACTIONS (6)
  - ARTHRALGIA [None]
  - DRUG DISPENSING ERROR [None]
  - HAIR GROWTH ABNORMAL [None]
  - RESORPTION BONE INCREASED [None]
  - WEIGHT INCREASED [None]
  - WRONG DRUG ADMINISTERED [None]
